FAERS Safety Report 4634425-6 (Version None)
Quarter: 2005Q2

REPORT INFORMATION
  Report Type: 
  Country: None (occurrence: None)
  Receive Date: 20050411
  Receipt Date: 20050331
  Transmission Date: 20051028
  Serious: Yes (Other)
  Sender: FDA-Public Use
  Company Number: HQWYE624901APR05

PATIENT

DRUGS (1)
  1. EFFEXOR XR [Suspect]
     Indication: PREGNANCY
     Route: 064

REACTIONS (2)
  - DRUG EXPOSURE DURING PREGNANCY [None]
  - LYMPHOCYTIC LEUKAEMIA [None]
